FAERS Safety Report 9759674 (Version 2)
Quarter: 2015Q3

REPORT INFORMATION
  Report Type: Spontaneous
  Country: US (occurrence: US)
  Receive Date: 20131216
  Receipt Date: 20150806
  Transmission Date: 20151125
  Serious: No
  Sender: FDA-Public Use
  Company Number: US-GILEAD-2010-0028603

PATIENT
  Age: 79 Year
  Sex: Female
  Weight: 48.99 kg

DRUGS (12)
  1. LETAIRIS [Suspect]
     Active Substance: AMBRISENTAN
     Indication: PULMONARY ARTERIAL HYPERTENSION
     Route: 048
     Dates: start: 20090701
  2. TYVASO [Concomitant]
     Active Substance: TREPROSTINIL
  3. V-R VITAMIN C 1000 MG [Concomitant]
  4. SOTALOL 80 MG [Concomitant]
     Active Substance: SOTALOL
  5. ATROVENT INHALER [Concomitant]
  6. VITAMIN E 100 UNITS [Concomitant]
  7. ADCIRCA 20 MG [Concomitant]
  8. LASIX 20 MG [Concomitant]
  9. ONDANSETRON ODT 4 MG [Concomitant]
  10. POTASSIUM CHLORIDE. [Concomitant]
     Active Substance: POTASSIUM CHLORIDE
  11. SPIRIVA [Concomitant]
     Active Substance: TIOTROPIUM BROMIDE MONOHYDRATE
  12. BETA CAROTENE 10,000 UNITS [Concomitant]

REACTIONS (1)
  - Lip dry [Unknown]
